FAERS Safety Report 7884883-9 (Version None)
Quarter: 2011Q4

REPORT INFORMATION
  Report Type: 
  Country: None (occurrence: None)
  Receive Date: 20111102
  Receipt Date: 20111026
  Transmission Date: 20120403
  Serious: Yes (Other)
  Sender: FDA-Public Use
  Company Number: PHHY2011BR95639

PATIENT
  Sex: Female
  Weight: 58 kg

DRUGS (7)
  1. EXFORGE [Suspect]
     Dosage: 1 DF, (80/5 MG ONE TABLET A DAY)
  2. SEDILAX [Concomitant]
     Indication: INTERVERTEBRAL DISC PROTRUSION
     Dosage: ONE TABLET A DAY
     Route: 048
  3. SIMVASTATIN [Concomitant]
     Indication: BLOOD CHOLESTEROL
     Dosage: 20 MG, (ONE TABLET A DAY)
     Route: 048
  4. DIGESTAL [Concomitant]
     Indication: PROPHYLAXIS AGAINST GASTROINTESTINAL ULCER
     Dosage: ONE TABLET A DAY
     Route: 048
  5. CALCITRAN B12 [Concomitant]
     Indication: VITAMIN SUPPLEMENTATION
     Dosage: 600 MG, (ONE TABLET A DAY)
  6. EQUAVIT [Concomitant]
     Indication: VITAMIN SUPPLEMENTATION
     Dosage: ONE TABLET A DAY
     Route: 048
  7. BETASERC [Concomitant]
     Dosage: 10 MG, (ONE TABLET A DAY)

REACTIONS (6)
  - BLOOD PRESSURE INCREASED [None]
  - EYE IRRITATION [None]
  - GLAUCOMA [None]
  - HERPES OPHTHALMIC [None]
  - BLISTER [None]
  - VISUAL IMPAIRMENT [None]
